FAERS Safety Report 7931049-X (Version None)
Quarter: 2011Q4

REPORT INFORMATION
  Report Type: 
  Country: None (occurrence: None)
  Receive Date: 20111121
  Receipt Date: 20111114
  Transmission Date: 20120403
  Serious: Yes (Disabling)
  Sender: FDA-Public Use
  Company Number: JP-ABBOTT-10P-087-0640485-00

PATIENT
  Sex: Male
  Weight: 1.946 kg

DRUGS (6)
  1. ALDOMET [Suspect]
     Indication: MATERNAL EXPOSURE TIMING UNSPECIFIED
     Route: 064
  2. TRICHLORMETHIAZIDE [Suspect]
     Indication: MATERNAL EXPOSURE TIMING UNSPECIFIED
     Route: 064
  3. HYDRALAZINE HYDROCHLORIDE [Suspect]
     Indication: MATERNAL EXPOSURE TIMING UNSPECIFIED
     Route: 064
  4. PERINDOPRIL ERBUMINE [Suspect]
     Indication: MATERNAL EXPOSURE TIMING UNSPECIFIED
     Route: 064
  5. CANDESARTAN CILEXETIL [Suspect]
     Indication: MATERNAL EXPOSURE TIMING UNSPECIFIED
     Route: 064
  6. BISOPROLOL FUMARATE [Suspect]
     Indication: MATERNAL EXPOSURE TIMING UNSPECIFIED
     Route: 064

REACTIONS (2)
  - RENAL APLASIA [None]
  - FOETAL EXPOSURE DURING PREGNANCY [None]
